FAERS Safety Report 8562907 (Version 2)
Quarter: 2013Q1

REPORT INFORMATION
  Report Type: Spontaneous
  Country: US (occurrence: US)
  Receive Date: 20120515
  Receipt Date: 20130312
  Transmission Date: 20140127
  Serious: No
  Sender: FDA-Public Use
  Company Number: US-PFIZER INC-2012116814

PATIENT
  Age: 61 Year
  Sex: Female

DRUGS (7)
  1. LYRICA [Suspect]
     Dosage: 75 MG, 1 QID
     Route: 048
  2. NEURONTIN [Suspect]
     Dosage: UNK
  3. ASPIRIN [Concomitant]
     Dosage: 81 MG, 1 AT BEDTIME
  4. FLAXSEED OIL [Concomitant]
     Dosage: 1300 MG, PER SOFT GEL 2 A DAY
  5. VITAMIN B [Concomitant]
     Dosage: 2500 UG, 1 TABLET A DAY
  6. VITAMIN C [Concomitant]
     Dosage: 500 MG, 1 A DAY
  7. VITAMIN D3 [Concomitant]
     Dosage: 2000 IU, UNK

REACTIONS (2)
  - Pain in extremity [Unknown]
  - Burning sensation [Unknown]
